FAERS Safety Report 12053870 (Version 5)
Quarter: 2017Q4

REPORT INFORMATION
  Report Type: Spontaneous
  Country: US (occurrence: US)
  Receive Date: 20160209
  Receipt Date: 20171108
  Transmission Date: 20180320
  Serious: Yes (Other)
  Sender: FDA-Public Use
  Company Number: US-SA-2015SA215433

PATIENT
  Age: 48 Year
  Sex: Female
  Weight: 87.08 kg

DRUGS (21)
  1. ALIROCUMAB PREFILLED PEN [Suspect]
     Active Substance: ALIROCUMAB
     Indication: TYPE V HYPERLIPIDAEMIA
     Dates: start: 20151103
  2. RANITIDINE. [Concomitant]
     Active Substance: RANITIDINE
  3. METOPROLOL. [Concomitant]
     Active Substance: METOPROLOL
  4. PLAVIX [Concomitant]
     Active Substance: CLOPIDOGREL BISULFATE
  5. PRALUENT [Suspect]
     Active Substance: ALIROCUMAB
     Indication: TYPE V HYPERLIPIDAEMIA
     Route: 058
     Dates: start: 20151103
  6. PRALUENT [Suspect]
     Active Substance: ALIROCUMAB
     Indication: TYPE V HYPERLIPIDAEMIA
     Route: 058
     Dates: start: 20160427
  7. ALIROCUMAB PREFILLED PEN [Suspect]
     Active Substance: ALIROCUMAB
     Indication: TYPE V HYPERLIPIDAEMIA
     Dates: start: 20160427
  8. FUROSEMIDE. [Concomitant]
     Active Substance: FUROSEMIDE
  9. ISOSORBIDE MONONITRATE. [Concomitant]
     Active Substance: ISOSORBIDE MONONITRATE
     Dosage: EVERY MORNING
  10. BENAZEPRIL [Concomitant]
     Active Substance: BENAZEPRIL HYDROCHLORIDE
  11. METHOCARBAMOL. [Concomitant]
     Active Substance: METHOCARBAMOL
  12. OMEPRAZOLE. [Concomitant]
     Active Substance: OMEPRAZOLE
  13. ROPINIROLE. [Concomitant]
     Active Substance: ROPINIROLE
  14. ASPIRIN. [Concomitant]
     Active Substance: ASPIRIN
  15. GABAPENTIN. [Concomitant]
     Active Substance: GABAPENTIN
  16. PRALUENT [Suspect]
     Active Substance: ALIROCUMAB
     Indication: TYPE V HYPERLIPIDAEMIA
     Route: 058
     Dates: start: 20151103
  17. ALIROCUMAB PREFILLED PEN [Suspect]
     Active Substance: ALIROCUMAB
     Indication: TYPE V HYPERLIPIDAEMIA
     Dates: start: 20160427
  18. POTASSIUM CHLORIDE. [Concomitant]
     Active Substance: POTASSIUM CHLORIDE
  19. PRALUENT [Suspect]
     Active Substance: ALIROCUMAB
     Indication: TYPE V HYPERLIPIDAEMIA
     Route: 058
     Dates: start: 20160427
  20. ALIROCUMAB PREFILLED PEN [Suspect]
     Active Substance: ALIROCUMAB
     Indication: TYPE V HYPERLIPIDAEMIA
     Dates: start: 20151103
  21. HYDROCODONE [Concomitant]
     Active Substance: HYDROCODONE
     Dosage: 7.5-325MG

REACTIONS (24)
  - Cough [Not Recovered/Not Resolved]
  - Pain in extremity [Recovering/Resolving]
  - Feeling hot [Not Recovered/Not Resolved]
  - Muscle spasms [Not Recovered/Not Resolved]
  - Tongue disorder [Recovering/Resolving]
  - Candida infection [Not Recovered/Not Resolved]
  - Flushing [Unknown]
  - Sneezing [Unknown]
  - Hyperhidrosis [Recovering/Resolving]
  - Oral disorder [Recovering/Resolving]
  - Oral discomfort [Recovering/Resolving]
  - Oral pain [Recovering/Resolving]
  - Dysgeusia [Recovering/Resolving]
  - Stomatitis [Recovering/Resolving]
  - Sinus disorder [Unknown]
  - Tongue discomfort [Recovering/Resolving]
  - Myalgia [Recovering/Resolving]
  - Musculoskeletal discomfort [Unknown]
  - Gastrooesophageal reflux disease [Unknown]
  - Limb discomfort [Not Recovered/Not Resolved]
  - Sensitivity of teeth [Recovering/Resolving]
  - Back pain [Unknown]
  - High density lipoprotein decreased [Unknown]
  - Burning sensation [Unknown]

NARRATIVE: CASE EVENT DATE: 20160203
